FAERS Safety Report 4503280-7 (Version None)
Quarter: 2004Q4

REPORT INFORMATION
  Report Type: 
  Country: None (occurrence: None)
  Receive Date: 20041112
  Receipt Date: 20041103
  Transmission Date: 20050328
  Serious: Yes (Hospitalization)
  Sender: FDA-Public Use
  Company Number: 2004UW22085

PATIENT
  Age: 56 Year
  Sex: Female
  Weight: 47.7 kg

DRUGS (1)
  1. IRESSA [Suspect]
     Indication: TONGUE NEOPLASM MALIGNANT STAGE UNSPECIFIED
     Dosage: 500 MG QD GE

REACTIONS (3)
  - DEHYDRATION [None]
  - DISEASE PROGRESSION [None]
  - PAIN [None]
